FAERS Safety Report 8073451-4 (Version None)
Quarter: 2012Q1

REPORT INFORMATION
  Report Type: 
  Country: None (occurrence: None)
  Receive Date: 20120126
  Receipt Date: 20120126
  Transmission Date: 20120608
  Serious: Yes (Hospitalization)
  Sender: FDA-Public Use
  Company Number: None

PATIENT
  Sex: Male
  Weight: 78.5 kg

DRUGS (5)
  1. SINGULAIR [Concomitant]
     Route: 048
  2. VYVANSE [Concomitant]
     Route: 048
  3. DEPAKOTE ER [Suspect]
     Indication: DEPRESSION
     Dosage: 500
     Route: 048
  4. ADVAIR DISKUS 100/50 [Concomitant]
  5. INTUNIV [Concomitant]
     Route: 048

REACTIONS (2)
  - SPEECH DISORDER [None]
  - SOMNOLENCE [None]
